FAERS Safety Report 4990209-0 (Version None)
Quarter: 2006Q2

REPORT INFORMATION
  Report Type: 
  Country: None (occurrence: None)
  Receive Date: 20060503
  Receipt Date: 20060403
  Transmission Date: 20061013
  Serious: Yes (Hospitalization, Other)
  Sender: FDA-Public Use
  Company Number: US-MERCK-0604USA00494

PATIENT
  Age: 61 Year
  Sex: Male
  Weight: 103 kg

DRUGS (22)
  1. VIOXX [Suspect]
     Indication: ARTHRITIS
     Route: 048
     Dates: start: 19991019, end: 20031126
  2. VIOXX [Suspect]
     Route: 048
     Dates: start: 19991019, end: 20031126
  3. VIOXX [Suspect]
     Route: 048
     Dates: start: 19991019, end: 20031126
  4. VIOXX [Suspect]
     Route: 048
     Dates: start: 19991019, end: 20031126
  5. METOPROLOL [Concomitant]
     Route: 065
  6. NITROQUICK [Concomitant]
     Route: 065
  7. RANITIDINE [Concomitant]
     Route: 065
  8. LOTREL [Concomitant]
     Route: 065
  9. ZELNORM [Concomitant]
     Route: 065
  10. GLUCOPHAGE [Concomitant]
     Route: 065
  11. AVAPRO [Concomitant]
     Route: 065
  12. LOPRESSOR [Concomitant]
     Route: 065
  13. CHLORPROPAMIDE [Concomitant]
     Route: 065
  14. ULTRAM [Concomitant]
     Route: 065
     Dates: start: 19980101, end: 20010901
  15. DOXYCYCLINE [Concomitant]
     Route: 065
  16. WELLBUTRIN [Concomitant]
     Route: 065
     Dates: start: 19991001, end: 20031001
  17. OXYCONTIN [Concomitant]
     Route: 065
     Dates: start: 20011201, end: 20030901
  18. FAMOTIDINE [Concomitant]
     Route: 065
  19. ZITHROMAX [Concomitant]
     Route: 065
  20. ALBUTEROL [Concomitant]
     Route: 065
  21. PROMETHAZINE [Concomitant]
     Route: 065
  22. PEPCID [Concomitant]
     Route: 065

REACTIONS (31)
  - ABDOMINAL PAIN [None]
  - ABDOMINAL PAIN UPPER [None]
  - BACK INJURY [None]
  - CALCULUS URETERIC [None]
  - CARDIAC DISORDER [None]
  - CARDIOVASCULAR DISORDER [None]
  - CEREBROVASCULAR ACCIDENT [None]
  - CONFUSIONAL STATE [None]
  - CONSTIPATION [None]
  - CORONARY ARTERY DISEASE [None]
  - CYST [None]
  - ELECTROCARDIOGRAM ABNORMAL [None]
  - FLANK PAIN [None]
  - HAEMORRHOIDS [None]
  - HYDROCELE [None]
  - HYPOTENSION [None]
  - LACUNAR INFARCTION [None]
  - LIVER DISORDER [None]
  - LIVER FUNCTION TEST ABNORMAL [None]
  - LOSS OF CONSCIOUSNESS [None]
  - MALLORY-WEISS SYNDROME [None]
  - MYOCARDIAL ISCHAEMIA [None]
  - PANCREATITIS [None]
  - PROCTITIS [None]
  - RESPIRATORY TRACT INFECTION [None]
  - SINUS BRADYCARDIA [None]
  - SPINAL FUSION SURGERY [None]
  - SYNCOPE [None]
  - TRANSAMINASES INCREASED [None]
  - TRANSIENT ISCHAEMIC ATTACK [None]
  - VENTRICULAR HYPERTROPHY [None]
